FAERS Safety Report 7525102-2 (Version None)
Quarter: 2011Q2

REPORT INFORMATION
  Report Type: 
  Country: None (occurrence: None)
  Receive Date: 20110606
  Receipt Date: 20090108
  Transmission Date: 20111010
  Serious: Yes (Other)
  Sender: FDA-Public Use
  Company Number: US-BAYER-200910067NA

PATIENT
  Age: 42 Year
  Sex: Female
  Weight: 53 kg

DRUGS (7)
  1. HEPARIN [Concomitant]
     Dosage: 15000 U, UNK
     Route: 042
     Dates: start: 20020813, end: 20020813
  2. THROMBIN LOCAL SOLUTION [Concomitant]
     Dosage: 30000 U, UNK
     Route: 042
     Dates: start: 20020813, end: 20020813
  3. PLATELETS [Concomitant]
     Dosage: 41 U, UNK
     Route: 042
     Dates: start: 20020813, end: 20020813
  4. TRASYLOL [Suspect]
     Indication: CORONARY ARTERY BYPASS
     Dosage: 200 ML, LOADING DOSE
     Route: 042
     Dates: start: 20020813, end: 20020813
  5. RED BLOOD CELLS [Concomitant]
     Dosage: 12 U, UNK
     Route: 042
     Dates: start: 20020813, end: 20020813
  6. TRASYLOL [Suspect]
     Indication: STERNOTOMY
     Dosage: 50 ML/HOUR INFUSION
     Route: 042
     Dates: start: 20020813, end: 20020813
  7. FRESH FROZEN PLASMA [Concomitant]
     Dosage: 8 U, UNK
     Route: 042
     Dates: start: 20020813, end: 20020813

REACTIONS (4)
  - RENAL FAILURE [None]
  - UNEVALUABLE EVENT [None]
  - INJURY [None]
  - PAIN [None]
